FAERS Safety Report 24430579 (Version 4)
Quarter: 2024Q4

REPORT INFORMATION
  Report Type: Report from Study
  Country: DE (occurrence: DE)
  Receive Date: 20241013
  Receipt Date: 20241029
  Transmission Date: 20250115
  Serious: Yes (Other)
  Sender: JOHNSON AND JOHNSON
  Company Number: DE-BAYER-2024A137069

PATIENT
  Age: 75 Year
  Sex: Male

DRUGS (3)
  1. VENTAVIS [Suspect]
     Active Substance: ILOPROST
     Indication: Pulmonary arterial hypertension
     Dosage: 10UG?THERAPY START DATE: 16/SEP/2024
     Route: 055
     Dates: end: 20240930
  2. OXYGEN [Suspect]
     Active Substance: OXYGEN
     Route: 065
  3. ASPIRIN [Suspect]
     Active Substance: ASPIRIN
     Route: 065

REACTIONS (5)
  - Ascites [Recovering/Resolving]
  - Cough [Not Recovered/Not Resolved]
  - Epistaxis [Not Recovered/Not Resolved]
  - Nasal crusting [Unknown]
  - Oedema [Recovering/Resolving]

NARRATIVE: CASE EVENT DATE: 20240820
